FAERS Safety Report 5870435-9 (Version None)
Quarter: 2008Q3

REPORT INFORMATION
  Report Type: 
  Country: None (occurrence: None)
  Receive Date: 20080904
  Receipt Date: 20080714
  Transmission Date: 20090109
  Serious: No
  Sender: FDA-Public Use
  Company Number: US-BRISTOL-MYERS SQUIBB COMPANY-14232391

PATIENT
  Age: 54 Year
  Sex: Male

DRUGS (5)
  1. DEFINITY [Suspect]
     Indication: CARDIAC STRESS TEST
     Route: 042
     Dates: start: 20080618
  2. HUMALOG [Concomitant]
  3. LANTUS [Concomitant]
  4. LOPRESSOR [Concomitant]
  5. BENZONATATE [Concomitant]

REACTIONS (2)
  - MUSCULOSKELETAL DISCOMFORT [None]
  - WHEEZING [None]
